FAERS Safety Report 17824655 (Version 2)
Quarter: 2020Q3

REPORT INFORMATION
  Report Type: Report from Study
  Country: BR (occurrence: BR)
  Receive Date: 20200526
  Receipt Date: 20200821
  Transmission Date: 20201102
  Serious: Yes (Other)
  Sender: FDA-Public Use
  Company Number: PHHY2019BR142296

PATIENT
  Age: 50 Year
  Sex: Female

DRUGS (4)
  1. COSENTYX [Suspect]
     Active Substance: SECUKINUMAB
     Indication: PSORIATIC ARTHROPATHY
     Dosage: 300 MG, UNKNOWN
     Route: 065
     Dates: start: 20190512
  2. COSENTYX [Suspect]
     Active Substance: SECUKINUMAB
     Dosage: UNK
     Route: 065
     Dates: start: 20190527
  3. COSENTYX [Suspect]
     Active Substance: SECUKINUMAB
     Dosage: 150 MG, UNKNOWN
     Route: 065
  4. COSENTYX [Suspect]
     Active Substance: SECUKINUMAB
     Dosage: UNK
     Route: 065
     Dates: start: 20190610

REACTIONS (11)
  - Influenza like illness [Unknown]
  - Drug ineffective [Unknown]
  - Decreased immune responsiveness [Unknown]
  - Contusion [Recovering/Resolving]
  - Pain [Unknown]
  - Oral candidiasis [Recovered/Resolved]
  - Skin discolouration [Unknown]
  - Dyspepsia [Unknown]
  - Incorrect dose administered [Unknown]
  - Throat irritation [Unknown]
  - Coating in mouth [Unknown]

NARRATIVE: CASE EVENT DATE: 20190512
